FAERS Safety Report 9670705 (Version 3)
Quarter: 2015Q3

REPORT INFORMATION
  Report Type: Spontaneous
  Country: JP (occurrence: JP)
  Receive Date: 20131106
  Receipt Date: 20150817
  Transmission Date: 20151125
  Serious: Yes (Death, Hospitalization)
  Sender: FDA-Public Use
  Company Number: JP-ROCHE-1295336

PATIENT
  Age: 54 Year
  Sex: Female
  Weight: 46 kg

DRUGS (2)
  1. AVASTIN [Suspect]
     Active Substance: BEVACIZUMAB
     Indication: BREAST CANCER METASTATIC
     Route: 041
     Dates: start: 20130401, end: 20130415
  2. PACLITAXEL. [Concomitant]
     Active Substance: PACLITAXEL
     Indication: BREAST CANCER METASTATIC
     Route: 042
     Dates: start: 20130325, end: 20130415

REACTIONS (6)
  - Disseminated intravascular coagulation [Fatal]
  - Diarrhoea [Unknown]
  - Decreased appetite [Unknown]
  - Tumour lysis syndrome [Fatal]
  - Vomiting [Unknown]
  - Breast cancer [Fatal]

NARRATIVE: CASE EVENT DATE: 20130428
